FAERS Safety Report 5063094-9 (Version None)
Quarter: 2006Q3

REPORT INFORMATION
  Report Type: 
  Country: None (occurrence: None)
  Receive Date: 20060724
  Receipt Date: 20060710
  Transmission Date: 20061208
  Serious: Yes (Other)
  Sender: FDA-Public Use
  Company Number: HQ2442222JUN2001

PATIENT
  Age: 36 Year
  Sex: Female

DRUGS (4)
  1. EFFEXOR [Suspect]
     Dosage: ORAL
     Route: 048
  2. HALDOL [Suspect]
  3. REMERON [Suspect]
     Indication: POSTPARTUM DEPRESSION
  4. WELLBUTRIN [Suspect]
     Indication: POSTPARTUM DEPRESSION

REACTIONS (5)
  - DEATH OF RELATIVE [None]
  - DRUG EXPOSURE BEFORE PREGNANCY [None]
  - HOMICIDE [None]
  - INCORRECT DOSE ADMINISTERED [None]
  - PREGNANCY [None]
